FAERS Safety Report 14298669 (Version 1)
Quarter: 2017Q4

REPORT INFORMATION
  Report Type: Spontaneous
  Country: CH (occurrence: CH)
  Receive Date: 20171218
  Receipt Date: 20171218
  Transmission Date: 20180321
  Serious: Yes (Other)
  Sender: FDA-Public Use
  Company Number: CH-PURDUE PHARMA-GBR-2017-0051407

PATIENT
  Age: 42 Year
  Sex: Male
  Weight: 71 kg

DRUGS (10)
  1. IPILIMUMAB [Suspect]
     Active Substance: IPILIMUMAB
     Indication: MALIGNANT MELANOMA STAGE IV
     Dosage: 200 MG, SINGLE
     Route: 042
     Dates: start: 20170920, end: 20170920
  2. DEXAMETHASON GALEPHARM 4 MG [Suspect]
     Active Substance: DEXAMETHASONE
     Indication: PRODUCT USED FOR UNKNOWN INDICATION
     Dosage: QID (1-1-1-1)
     Route: 048
     Dates: start: 20170822
  3. IPILIMUMAB [Suspect]
     Active Substance: IPILIMUMAB
     Dosage: 200 MG, SINGLE
     Route: 042
     Dates: start: 20170830, end: 20170830
  4. FLUIMUCIL [Concomitant]
     Active Substance: ACETYLCYSTEINE
     Dosage: 200 MG, BID (0-1-1-0 )
     Route: 048
     Dates: start: 20171106
  5. DIFLUCAN [Suspect]
     Active Substance: FLUCONAZOLE
     Indication: HERPES SIMPLEX
     Dosage: 300 MG, SINGLE
     Route: 048
     Dates: start: 20170911, end: 20170911
  6. MIDAZOLAM [Suspect]
     Active Substance: MIDAZOLAM HYDROCHLORIDE
     Indication: EPILEPSY
     Dosage: 5 MG, UNK
     Route: 065
     Dates: start: 20170822
  7. KEPPRA [Suspect]
     Active Substance: LEVETIRACETAM
     Indication: EPILEPSY
     Dosage: BID (1-0-1-0)
     Route: 048
     Dates: start: 20170822
  8. VALTREX [Suspect]
     Active Substance: VALACYCLOVIR HYDROCHLORIDE
     Indication: HERPES SIMPLEX
     Dosage: 500 MG, BID
     Route: 048
     Dates: start: 20170911, end: 20170921
  9. TARGIN [Suspect]
     Active Substance: NALOXONE HYDROCHLORIDE\OXYCODONE HYDROCHLORIDE
     Indication: PRODUCT USED FOR UNKNOWN INDICATION
     Dosage: 0.5/2.5MG BID (1-0-0-1 )
     Route: 048
     Dates: start: 20171106
  10. PANTOZOL [Concomitant]
     Active Substance: PANTOPRAZOLE SODIUM
     Indication: GASTROOESOPHAGEAL REFLUX DISEASE
     Dosage: DAILY (1-0-0-0)
     Route: 048
     Dates: start: 20150519

REACTIONS (3)
  - Oropharyngeal plaque [None]
  - Liver disorder [Unknown]
  - Rash maculo-papular [Recovered/Resolved]

NARRATIVE: CASE EVENT DATE: 20170906
